FAERS Safety Report 12679864 (Version 1)
Quarter: 2016Q3

REPORT INFORMATION
  Report Type: Spontaneous
  Country: US (occurrence: US)
  Receive Date: 20160824
  Receipt Date: 20160824
  Transmission Date: 20161109
  Serious: No
  Sender: FDA-Public Use
  Company Number: US-JNJFOC-20160603085

PATIENT
  Age: 72 Year
  Sex: Male

DRUGS (2)
  1. KETOCONAZOLE. [Suspect]
     Active Substance: KETOCONAZOLE
     Indication: FUNGAL INFECTION
     Route: 061
     Dates: start: 20160606
  2. KETOCONAZOLE. [Suspect]
     Active Substance: KETOCONAZOLE
     Indication: FUNGAL INFECTION
     Route: 061
     Dates: start: 2011, end: 20160526

REACTIONS (4)
  - Drug dose omission [Unknown]
  - Product container seal issue [Unknown]
  - Product tampering [Unknown]
  - Product colour issue [Unknown]

NARRATIVE: CASE EVENT DATE: 2016
